FAERS Safety Report 8559971-4 (Version None)
Quarter: 2012Q3

REPORT INFORMATION
  Report Type: 
  Country: None (occurrence: None)
  Receive Date: 20120802
  Receipt Date: 20120725
  Transmission Date: 20120928
  Serious: Yes (Other)
  Sender: FDA-Public Use
  Company Number: US-US-EMD SERONO, INC.-7031031

PATIENT
  Sex: Female
  Weight: 68 kg

DRUGS (3)
  1. REBIF [Suspect]
     Indication: MULTIPLE SCLEROSIS
     Route: 058
     Dates: start: 20021204
  2. DETROL [Concomitant]
     Indication: BLADDER DYSFUNCTION
  3. ZOLOFT [Concomitant]
     Indication: DEPRESSION

REACTIONS (2)
  - FEMUR FRACTURE [None]
  - ROAD TRAFFIC ACCIDENT [None]
